FAERS Safety Report 22316179 (Version 5)
Quarter: 2023Q4

REPORT INFORMATION
  Report Type: Report from Study
  Country: US (occurrence: US)
  Receive Date: 20230512
  Receipt Date: 20231218
  Transmission Date: 20240110
  Serious: No
  Sender: FDA-Public Use
  Company Number: US-002147023-NVSC2023US107447

PATIENT
  Sex: Male

DRUGS (1)
  1. KESIMPTA [Suspect]
     Active Substance: OFATUMUMAB
     Indication: Product used for unknown indication
     Dosage: UNK
     Route: 065

REACTIONS (9)
  - Cold sweat [Unknown]
  - Hyperhidrosis [Unknown]
  - Panic attack [Unknown]
  - Dysarthria [Unknown]
  - Migraine [Unknown]
  - Fatigue [Unknown]
  - Muscle spasms [Unknown]
  - Back pain [Unknown]
  - Headache [Unknown]
